FAERS Safety Report 8270567-4 (Version None)
Quarter: 2012Q2

REPORT INFORMATION
  Report Type: 
  Country: None (occurrence: None)
  Receive Date: 20120410
  Receipt Date: 20120403
  Transmission Date: 20120825
  Serious: Yes (Hospitalization)
  Sender: FDA-Public Use
  Company Number: FR-BRISTOL-MYERS SQUIBB COMPANY-16503815

PATIENT
  Age: 90 Year
  Sex: Female

DRUGS (9)
  1. NITROGLYCERIN [Concomitant]
  2. ATROVENT [Concomitant]
     Route: 055
  3. COUMADIN [Suspect]
     Indication: ATRIAL FIBRILLATION
     Dosage: 1DF=2 MG 1.5/D INTERR:04JAN2012 RESTART:10JAN2012
     Route: 048
  4. LASIX [Concomitant]
     Route: 048
  5. AMLODIPINE BESYLATE [Concomitant]
     Dosage: CAP
  6. PERINDOPRIL ERBUMINE [Concomitant]
     Dosage: TAB
  7. POTASSIUM CHLORIDE [Concomitant]
     Dosage: CAP
  8. LANTUS [Concomitant]
     Dosage: IN THE MRNG
     Route: 058
  9. BRICANYL [Concomitant]
     Route: 055

REACTIONS (5)
  - INTERNATIONAL NORMALISED RATIO INCREASED [None]
  - HAEMATOMA [None]
  - SUBILEUS [None]
  - ANAEMIA [None]
  - ILEUS PARALYTIC [None]
